FAERS Safety Report 4492081-4 (Version None)
Quarter: 2004Q4

REPORT INFORMATION
  Report Type: 
  Country: None (occurrence: None)
  Receive Date: 20041029
  Receipt Date: 20041014
  Transmission Date: 20050328
  Serious: Yes (Other)
  Sender: FDA-Public Use
  Company Number: 2004-DE-05490GD

PATIENT
  Age: 60 Year
  Sex: Male

DRUGS (3)
  1. TAMSULOSIN                 (TAMSULOSIN HYDROCHLORIDE) [Suspect]
     Indication: BENIGN PROSTATIC HYPERPLASIA
  2. CARBAMAZEPINE [Concomitant]
  3. CLOBAZAM (CLOBAZAM) [Concomitant]

REACTIONS (2)
  - CONDITION AGGRAVATED [None]
  - TEMPORAL LOBE EPILEPSY [None]
